FAERS Safety Report 7705219-X (Version None)
Quarter: 2011Q3

REPORT INFORMATION
  Report Type: 
  Country: None (occurrence: None)
  Receive Date: 20110824
  Receipt Date: 20110817
  Transmission Date: 20111222
  Serious: Yes (Hospitalization)
  Sender: FDA-Public Use
  Company Number: DE-BAYER-2011-073544

PATIENT
  Age: 76 Year
  Sex: Female

DRUGS (1)
  1. SORAFENIB (RAF KINASE INHIBITOR) [Suspect]
     Indication: RENAL CELL CARCINOMA
     Dosage: ACCORDING TO PROTOCOL
     Route: 048
     Dates: start: 20110608, end: 20110815

REACTIONS (1)
  - PULMONARY EMBOLISM [None]
